FAERS Safety Report 10042938 (Version 1)
Quarter: 2014Q1

REPORT INFORMATION
  Report Type: Spontaneous
  Country: GR (occurrence: GR)
  Receive Date: 20140328
  Receipt Date: 20140328
  Transmission Date: 20141002
  Serious: Yes (Death, Other)
  Sender: FDA-Public Use
  Company Number: GR-ROCHE-1368196

PATIENT
  Age: 60 Year
  Sex: Female

DRUGS (4)
  1. PEG-INTERFERON ALFA 2A [Suspect]
     Indication: HEPATITIS C
     Route: 058
  2. RIBAVIRIN [Suspect]
     Indication: HEPATITIS C
     Route: 065
  3. PEGINTERFERON ALFA-2B [Suspect]
     Indication: HEPATITIS C
     Route: 058
  4. METFORMIN [Concomitant]
     Route: 065

REACTIONS (2)
  - Thrombotic thrombocytopenic purpura [Fatal]
  - Autoimmune haemolytic anaemia [Unknown]
